FAERS Safety Report 5845609-3 (Version None)
Quarter: 2008Q3

REPORT INFORMATION
  Report Type: 
  Country: None (occurrence: None)
  Receive Date: 20080814
  Receipt Date: 20080804
  Transmission Date: 20090109
  Serious: Yes (Other)
  Sender: FDA-Public Use
  Company Number: FR-ABBOTT-08P-056-0468648-00

PATIENT
  Sex: Female

DRUGS (2)
  1. HUMIRA [Suspect]
     Indication: ANKYLOSING SPONDYLITIS
     Route: 058
     Dates: start: 20060301, end: 20080701
  2. HUMIRA [Suspect]
     Route: 058
     Dates: start: 20080701

REACTIONS (5)
  - ANKYLOSING SPONDYLITIS [None]
  - FOLLICULITIS [None]
  - NIGHT SWEATS [None]
  - PRURITUS [None]
  - PSORIASIS [None]
